FAERS Safety Report 9357324 (Version 2)
Quarter: 2013Q3

REPORT INFORMATION
  Report Type: Spontaneous
  Country: US (occurrence: US)
  Receive Date: 20130620
  Receipt Date: 20130923
  Transmission Date: 20140515
  Serious: Yes (Death, Hospitalization)
  Sender: FDA-Public Use
  Company Number: US-JNJFOC-20130604198

PATIENT
  Sex: Male
  Weight: 83.5 kg

DRUGS (23)
  1. INVEGA SUSTENNA [Suspect]
     Indication: MAJOR DEPRESSION
     Dosage: 1 DOSE
     Route: 030
     Dates: start: 20130513
  2. INVEGA SUSTENNA [Suspect]
     Indication: MANIA
     Dosage: 1 DOSE
     Route: 030
     Dates: start: 20130513
  3. INVEGA SUSTENNA [Suspect]
     Indication: BIPOLAR DISORDER
     Dosage: 1 DOSE
     Route: 030
     Dates: start: 20130513
  4. INVEGA SUSTENNA [Suspect]
     Indication: SCHIZOAFFECTIVE DISORDER
     Dosage: 1 DOSE
     Route: 030
     Dates: start: 20130513
  5. INVEGA SUSTENNA [Suspect]
     Indication: PSYCHOTIC DISORDER
     Dosage: 1 DOSE
     Route: 030
     Dates: start: 20130513
  6. RISPERIDAL [Suspect]
     Indication: MAJOR DEPRESSION
     Route: 048
     Dates: start: 20130523
  7. RISPERIDAL [Suspect]
     Indication: MAJOR DEPRESSION
     Route: 048
  8. RISPERIDAL [Suspect]
     Indication: MANIA
     Route: 048
  9. RISPERIDAL [Suspect]
     Indication: MANIA
     Route: 048
     Dates: start: 20130523
  10. RISPERIDAL [Suspect]
     Indication: BIPOLAR DISORDER
     Route: 048
  11. RISPERIDAL [Suspect]
     Indication: BIPOLAR DISORDER
     Route: 048
     Dates: start: 20130523
  12. RISPERIDAL [Suspect]
     Indication: SCHIZOAFFECTIVE DISORDER
     Route: 048
  13. RISPERIDAL [Suspect]
     Indication: SCHIZOAFFECTIVE DISORDER
     Route: 048
     Dates: start: 20130523
  14. RISPERIDAL [Suspect]
     Indication: PSYCHOTIC DISORDER
     Route: 048
  15. RISPERIDAL [Suspect]
     Indication: PSYCHOTIC DISORDER
     Route: 048
     Dates: start: 20130523
  16. HALODOL [Suspect]
     Indication: PSYCHOTIC DISORDER
     Route: 030
  17. HALODOL [Suspect]
     Indication: PSYCHOTIC DISORDER
     Route: 030
     Dates: start: 20130523
  18. HALODOL [Suspect]
     Indication: AGITATION
     Route: 030
  19. HALODOL [Suspect]
     Indication: AGITATION
     Route: 030
     Dates: start: 20130523
  20. ATIVAN [Concomitant]
     Indication: AGITATION
     Route: 065
  21. LITHIUM CARBONATE [Concomitant]
     Indication: BIPOLAR DISORDER
     Route: 065
  22. TRAZODONE [Concomitant]
     Indication: SLEEP DISORDER THERAPY
     Route: 065
  23. BENADRYL [Concomitant]
     Indication: SLEEP DISORDER THERAPY
     Route: 065
     Dates: start: 20130524

REACTIONS (5)
  - Bipolar disorder [Fatal]
  - Psychotic disorder [Fatal]
  - Sinus tachycardia [Unknown]
  - Hypertension [Unknown]
  - Agitation [Unknown]
